FAERS Safety Report 7329875-3 (Version None)
Quarter: 2011Q1

REPORT INFORMATION
  Report Type: 
  Country: None (occurrence: None)
  Receive Date: 20110303
  Receipt Date: 20110223
  Transmission Date: 20110831
  Serious: Yes (Congenital Anomaly)
  Sender: FDA-Public Use
  Company Number: FR-GILEAD-2011-0036914

PATIENT
  Sex: Male
  Weight: 8.39 kg

DRUGS (4)
  1. RETROVIR [Concomitant]
     Route: 042
     Dates: end: 20100223
  2. NORVIR [Concomitant]
     Route: 064
  3. INVIRASE [Concomitant]
     Route: 064
  4. TRUVADA [Suspect]
     Indication: HIV INFECTION
     Route: 064

REACTIONS (1)
  - PULMONARY VALVE STENOSIS [None]
